FAERS Safety Report 4686689-0 (Version None)
Quarter: 2005Q2

REPORT INFORMATION
  Report Type: 
  Country: None (occurrence: None)
  Receive Date: 20050608
  Receipt Date: 20050519
  Transmission Date: 20051028
  Serious: Yes (Death, Hospitalization)
  Sender: FDA-Public Use
  Company Number: 6014960

PATIENT
  Age: 75 Year
  Sex: Female

DRUGS (6)
  1. AMIODARONE HCL [Suspect]
     Dosage: 200 MG (200 MG, 1 IN  1 D), ORAL/YEARS
     Route: 048
  2. ENALAPRIL MALEATE [Suspect]
     Dosage: 20 MG (20 MG, 1 IN  1 D), ORAL/YEARS
     Route: 048
  3. KARDEGIC 75 MG, POWDER FOR ORAL SOLUTION) (ACETYLSALICYLATE LYSINE) [Suspect]
     Dosage: 75 MG (75 MG, 1 IN 1 D)
     Route: 048
     Dates: start: 20050323
  4. PLAVIX (75 MG, TABLET), (CLOPIDOGREL SULFATE) [Suspect]
     Route: 048
     Dates: start: 20050322
  5. AMLOR (5 MG, CAPSULE) (AMLODIPINE BESILATE) [Suspect]
     Dosage: 5 MG (5 MG, 1 IN 1 D)
     Route: 048
  6. ILOMEDINE (0,1 MILLIGRAM/MILLILITER, SOLUTION FOR INJECTION) (ILOPROST [Suspect]
     Route: 042
     Dates: start: 20050305, end: 20050328

REACTIONS (1)
  - ACUTE RESPIRATORY DISTRESS SYNDROME [None]
